FAERS Safety Report 8515320-9 (Version None)
Quarter: 2012Q3

REPORT INFORMATION
  Report Type: 
  Country: None (occurrence: None)
  Receive Date: 20120717
  Receipt Date: 20120705
  Transmission Date: 20120928
  Serious: No
  Sender: FDA-Public Use
  Company Number: US-ASTRAZENECA-2012SE45868

PATIENT
  Age: 70 Year
  Sex: Female
  Weight: 79.4 kg

DRUGS (2)
  1. PRILOSEC [Suspect]
     Indication: ACQUIRED OESOPHAGEAL WEB
     Route: 048
     Dates: start: 20020101
  2. PRILOSEC [Suspect]
     Indication: GASTROOESOPHAGEAL REFLUX DISEASE
     Route: 048
     Dates: start: 20020101

REACTIONS (7)
  - TIC [None]
  - GASTROOESOPHAGEAL REFLUX DISEASE [None]
  - TINNITUS [None]
  - ABNORMAL DREAMS [None]
  - HEADACHE [None]
  - DYSPEPSIA [None]
  - DRUG DOSE OMISSION [None]
